FAERS Safety Report 5420555-8 (Version None)
Quarter: 2007Q3

REPORT INFORMATION
  Report Type: 
  Country: None (occurrence: None)
  Receive Date: 20070821
  Receipt Date: 20070412
  Transmission Date: 20080115
  Serious: No
  Sender: FDA-Public Use
  Company Number: US-KINGPHARMUSA00001-K200700474

PATIENT

DRUGS (3)
  1. CYTOMEL [Suspect]
     Indication: THYROID DISORDER
     Dosage: 1.25 MCG, QD
     Route: 048
     Dates: start: 19980101, end: 20070301
  2. SYNTHROID [Concomitant]
     Indication: THYROID DISORDER
     Dosage: UNK, QD
     Route: 048
  3. CITALOPRAM HYDROBROMIDE [Concomitant]
     Indication: DEPRESSION
     Dosage: UNK, QD
     Route: 048

REACTIONS (5)
  - DIARRHOEA [None]
  - FEELING ABNORMAL [None]
  - HYPERTHYROIDISM [None]
  - INSOMNIA [None]
  - NERVOUSNESS [None]
